FAERS Safety Report 5103185-7 (Version None)
Quarter: 2006Q3

REPORT INFORMATION
  Report Type: 
  Country: None (occurrence: None)
  Receive Date: 20060912
  Receipt Date: 20060912
  Transmission Date: 20061208
  Serious: No
  Sender: FDA-Public Use
  Company Number: None

PATIENT
  Age: 58 Year
  Sex: Female

DRUGS (1)
  1. OPTIRAY 350 [Suspect]
     Indication: ABDOMINAL PAIN
     Dosage: 100 ML SINGLE INJECTION IV
     Route: 042
     Dates: start: 20060824

REACTIONS (3)
  - BRONCHOSPASM [None]
  - CARDIO-RESPIRATORY ARREST [None]
  - CONTRAST MEDIA REACTION [None]
